FAERS Safety Report 23672272 (Version 2)
Quarter: 2024Q2

REPORT INFORMATION
  Report Type: Spontaneous
  Country: US (occurrence: US)
  Receive Date: 20240326
  Receipt Date: 20240401
  Transmission Date: 20240716
  Serious: No
  Sender: FDA-Public Use
  Company Number: US-002147023-NVSC2024US063652

PATIENT
  Sex: Male

DRUGS (1)
  1. KESIMPTA [Suspect]
     Active Substance: OFATUMUMAB
     Indication: Product used for unknown indication
     Dosage: UNK
     Route: 058
     Dates: start: 2022

REACTIONS (6)
  - Immune system disorder [Unknown]
  - Asthenia [Unknown]
  - Illness [Unknown]
  - Fatigue [Unknown]
  - Myalgia [Unknown]
  - Urinary tract infection [Unknown]
